FAERS Safety Report 9128343 (Version 1)
Quarter: 2013Q1

REPORT INFORMATION
  Report Type: Spontaneous
  Country: US (occurrence: US)
  Receive Date: 20130228
  Receipt Date: 20130228
  Transmission Date: 20140127
  Serious: No
  Sender: FDA-Public Use
  Company Number: US-GLAXOSMITHKLINE-A0961797A

PATIENT
  Sex: Female

DRUGS (11)
  1. IMITREX [Suspect]
     Indication: MIGRAINE
     Dosage: 20MG AS REQUIRED
     Route: 045
     Dates: start: 2011
  2. IMITREX [Suspect]
     Indication: MIGRAINE
     Dosage: 6MG AS REQUIRED
     Route: 058
     Dates: start: 2010
  3. SYNTHROID [Concomitant]
  4. TOPAMAX [Concomitant]
  5. XANAX [Concomitant]
  6. EXCEDRIN MIGRAINE [Concomitant]
  7. SORIATANE [Concomitant]
  8. B12 INJECTION [Concomitant]
  9. VITAMIN [Concomitant]
  10. BONIVA [Concomitant]
  11. FISH OIL [Concomitant]

REACTIONS (3)
  - Dizziness [Recovered/Resolved]
  - Injection site pain [Unknown]
  - Therapeutic response delayed [Unknown]
